FAERS Safety Report 6291393-1 (Version None)
Quarter: 2009Q3

REPORT INFORMATION
  Report Type: 
  Country: None (occurrence: None)
  Receive Date: 20090730
  Receipt Date: 20090724
  Transmission Date: 20100115
  Serious: Yes (Death, Hospitalization, Other)
  Sender: FDA-Public Use
  Company Number: US-ELI_LILLY_AND_COMPANY-US200906006149

PATIENT
  Age: 73 Year
  Sex: Female

DRUGS (9)
  1. ALIMTA [Suspect]
     Indication: NON-SMALL CELL LUNG CANCER
     Dosage: 500 MG, 2/D
     Dates: start: 20090102, end: 20090603
  2. AVASTIN [Concomitant]
     Indication: NON-SMALL CELL LUNG CANCER
     Dosage: UNK, EVERY THREE WEEKS
     Dates: start: 20090102, end: 20090603
  3. CARBOPLATIN [Concomitant]
     Indication: NON-SMALL CELL LUNG CANCER
     Dosage: UNK, UNK
     Dates: start: 20090102, end: 20090603
  4. FOLIC ACID [Concomitant]
     Dosage: 1 MG, DAILY (1/D)
  5. VITAMIN B-12 [Concomitant]
     Dosage: 1000 MG, EVERY NINE WEEKS
     Route: 030
  6. LIPITOR [Concomitant]
  7. NORVASC [Concomitant]
  8. AVALIDE [Concomitant]
  9. ENTERIC ASPIRIN [Concomitant]

REACTIONS (3)
  - NEPHROPATHY TOXIC [None]
  - PANCYTOPENIA [None]
  - RENAL FAILURE [None]
